FAERS Safety Report 9796213 (Version 2)
Quarter: 2014Q1

REPORT INFORMATION
  Report Type: Spontaneous
  Country: GB (occurrence: GB)
  Receive Date: 20140103
  Receipt Date: 20140108
  Transmission Date: 20141002
  Serious: Yes (Hospitalization, Other)
  Sender: FDA-Public Use
  Company Number: GB-PFIZER INC-2014000272

PATIENT
  Age: 67 Year
  Sex: Female

DRUGS (17)
  1. AMIODARONE HCL [Suspect]
     Indication: ATRIAL FIBRILLATION
     Dosage: 200 MG, 3X/DAY
     Route: 048
  2. AMIODARONE HCL [Suspect]
     Dosage: 200 MG, 2X/DAY
     Route: 048
  3. AMIODARONE HCL [Suspect]
     Dosage: 200 MG, DAILY
     Route: 048
     Dates: start: 20130125
  4. AMIODARONE HCL [Suspect]
     Dosage: 200 MG, 2X/DAY
     Route: 048
     Dates: start: 20131029, end: 20131103
  5. AMIODARONE HCL [Suspect]
     Dosage: 200 MG, DAILY
     Route: 048
     Dates: start: 20131104, end: 20131108
  6. AMIODARONE HCL [Suspect]
     Dosage: 100 MG, DAILY
     Route: 048
     Dates: start: 20131109, end: 20131122
  7. HUMULIN [Concomitant]
     Dosage: UNK
  8. ADCAL-D3 [Concomitant]
     Dosage: UNK
  9. OMEPRAZOLE [Concomitant]
     Dosage: UNK
  10. SIMVASTATIN [Concomitant]
     Dosage: UNK
  11. DIGOXIN [Concomitant]
     Dosage: UNK
  12. ALENDRONIC ACID [Concomitant]
     Dosage: UNK
  13. PREDNISOLONE [Concomitant]
     Dosage: UNK
  14. FUROSEMIDE [Concomitant]
     Dosage: UNK
  15. XARELTO [Concomitant]
     Dosage: UNK
  16. BISOPROLOL [Concomitant]
     Dosage: UNK
  17. WARFARIN [Concomitant]
     Dosage: UNK

REACTIONS (3)
  - Dyspnoea [Not Recovered/Not Resolved]
  - Oxygen saturation decreased [Not Recovered/Not Resolved]
  - Treatment noncompliance [Unknown]
